FAERS Safety Report 12716683 (Version 4)
Quarter: 2018Q4

REPORT INFORMATION
  Report Type: Spontaneous
  Country: US (occurrence: US)
  Receive Date: 20160906
  Receipt Date: 20181129
  Transmission Date: 20190204
  Serious: Yes (Hospitalization, Other)
  Sender: FDA-Public Use
  Company Number: US-PFIZER INC-2016076383

PATIENT
  Age: 51 Year
  Sex: Male
  Weight: 104 kg

DRUGS (11)
  1. GLUCOPHAGE XR [Concomitant]
     Active Substance: METFORMIN HYDROCHLORIDE
     Dosage: 750 MG, UNK
  2. LYRICA [Suspect]
     Active Substance: PREGABALIN
     Indication: INTERVERTEBRAL DISC PROTRUSION
  3. FARXIGA [Concomitant]
     Active Substance: DAPAGLIFLOZIN PROPANEDIOL
     Dosage: 10 MG, UNK
  4. MOBIC [Concomitant]
     Active Substance: MELOXICAM
     Dosage: 7.5 MG, UNK
  5. PHENARGAN [Concomitant]
     Dosage: UNK
  6. CYMBALTA [Concomitant]
     Active Substance: DULOXETINE HYDROCHLORIDE
     Dosage: 30 MG, UNK
  7. CRESTOR [Concomitant]
     Active Substance: ROSUVASTATIN CALCIUM
     Dosage: 10 MG, UNK
  8. DEXPAK [Concomitant]
     Active Substance: DEXAMETHASONE
     Dosage: 1.5 MG, UNK
  9. PERCOCET [Concomitant]
     Active Substance: ACETAMINOPHEN\OXYCODONE HYDROCHLORIDE
     Dosage: UNK
  10. LYRICA [Suspect]
     Active Substance: PREGABALIN
     Indication: NECK PAIN
     Dosage: 200 MG, DAILY
     Dates: end: 20180829
  11. LYRICA [Suspect]
     Active Substance: PREGABALIN
     Indication: MONONEUROPATHY

REACTIONS (15)
  - Memory impairment [Unknown]
  - Spinal fracture [Unknown]
  - Pain in extremity [Unknown]
  - Pain [Unknown]
  - Sternal fracture [Unknown]
  - Restless legs syndrome [Unknown]
  - Insomnia [Unknown]
  - Myocardial infarction [Unknown]
  - Accident [Unknown]
  - Cardiac flutter [Unknown]
  - Irritability [Unknown]
  - Loss of personal independence in daily activities [Unknown]
  - Feeling abnormal [Unknown]
  - Malaise [Unknown]
  - Feeling of body temperature change [Unknown]
